FAERS Safety Report 7956101-4 (Version None)
Quarter: 2011Q4

REPORT INFORMATION
  Report Type: 
  Country: None (occurrence: None)
  Receive Date: 20111205
  Receipt Date: 20111202
  Transmission Date: 20120403
  Serious: Yes (Other)
  Sender: FDA-Public Use
  Company Number: US-PFIZER INC-2011295044

PATIENT
  Sex: Male
  Weight: 127 kg

DRUGS (6)
  1. COZAAR [Suspect]
     Indication: HYPERTENSION
     Dosage: UNK
  2. ZOCOR [Suspect]
     Indication: BLOOD CHOLESTEROL INCREASED
     Dosage: UNK
     Dates: start: 19900101
  3. PROCARDIA XL [Suspect]
     Indication: HYPERTENSION
     Dosage: 60 MG, DAILY
     Route: 048
     Dates: start: 19900101
  4. PROCARDIA XL [Suspect]
     Dosage: 30 MG, 2X/DAY
     Route: 048
  5. DIOVAN [Suspect]
     Indication: HYPERTENSION
     Dosage: UNK
  6. PROCARDIA XL [Suspect]
     Dosage: UNK
     Route: 048

REACTIONS (3)
  - BLOOD PRESSURE INCREASED [None]
  - WEIGHT INCREASED [None]
  - HYPERSENSITIVITY [None]
